FAERS Safety Report 9664347 (Version 1)
Quarter: 2013Q4

REPORT INFORMATION
  Report Type: Spontaneous
  Country: US (occurrence: None)
  Receive Date: 20131030
  Receipt Date: 20131030
  Transmission Date: 20140711
  Serious: Yes (Hospitalization)
  Sender: FDA-Public Use
  Company Number: None

PATIENT
  Age: 53 Year
  Sex: Female
  Weight: 85.73 kg

DRUGS (2)
  1. EPIRUBICIN [Suspect]
     Indication: BREAST CANCER
     Route: 042
     Dates: start: 20130618, end: 20130819
  2. CYCLOPHOSPHAMIDE [Suspect]
     Indication: BREAST CANCER
     Dosage: 1,200MG IV EVERY 3 WEEKS
     Route: 042
     Dates: start: 20130618, end: 20130819

REACTIONS (4)
  - Hypotension [None]
  - Vomiting [None]
  - Dizziness [None]
  - Fall [None]
